FAERS Safety Report 5269163-2 (Version None)
Quarter: 2007Q1

REPORT INFORMATION
  Report Type: 
  Country: None (occurrence: None)
  Receive Date: 20070319
  Receipt Date: 20070308
  Transmission Date: 20070707
  Serious: Yes (Hospitalization)
  Sender: FDA-Public Use
  Company Number: US-ROXANE LABORATORIES, INC-2007-BP-03302RO

PATIENT
  Sex: Male
  Weight: 57 kg

DRUGS (15)
  1. AZATHIOPRINE TABLETS USP, 50 MG [Suspect]
     Indication: COLITIS ULCERATIVE
     Dosage: 100 MG QD
     Route: 048
     Dates: start: 20060225, end: 20060514
  2. AZATHIOPRINE TABLETS USP, 50 MG [Suspect]
     Route: 048
     Dates: start: 20060514
  3. METHOTREXATE [Suspect]
     Dosage: SUSPECTED WRONG DRUG
     Route: 048
     Dates: start: 20060514
  4. PREDNISONE TAB [Suspect]
     Indication: COLITIS ULCERATIVE
     Dosage: VARIOUS DOSES FROM HIGH OF 60 MG/DAY THEN TAPERED
     Route: 048
     Dates: start: 20060101
  5. FLAGYL [Suspect]
     Indication: COLITIS ULCERATIVE
     Dosage: 250 MG TID
     Route: 048
     Dates: start: 20060101
  6. CIPROFLOXACIN [Suspect]
     Indication: COLITIS ULCERATIVE
     Dosage: 250 MG BID
     Route: 048
     Dates: start: 20060801
  7. COLAZAL [Suspect]
     Indication: COLITIS ULCERATIVE
     Dosage: 2.25 G/TID
     Route: 048
     Dates: start: 20060801, end: 20061001
  8. ASACOL [Suspect]
     Indication: COLITIS ULCERATIVE
     Dosage: 800 MG TID
     Route: 048
     Dates: start: 20061001
  9. MEDROL [Suspect]
     Indication: COLITIS ULCERATIVE
     Dosage: 24 MG BID
     Route: 048
     Dates: start: 20060911
  10. INFLIXIMAB [Suspect]
     Indication: COLITIS ULCERATIVE
     Dosage: INTERMITTENT INFUSIONS OF 300 MG
     Route: 042
     Dates: start: 20060901
  11. TUMS [Concomitant]
     Route: 048
     Dates: start: 20060101
  12. MULTI-VITAMINS [Concomitant]
  13. BELLADONNA ALKALOIDS [Concomitant]
     Dates: start: 20060501
  14. CORTIFOAM [Concomitant]
     Indication: COLITIS ULCERATIVE
     Route: 054
     Dates: start: 20060522
  15. IRON [Concomitant]
     Indication: SUPPLEMENTATION THERAPY

REACTIONS (16)
  - ABDOMINAL PAIN [None]
  - ANOREXIA [None]
  - BLOOD TEST ABNORMAL [None]
  - CUSHINGOID [None]
  - DIARRHOEA [None]
  - DISEASE PROGRESSION [None]
  - DRUG DISPENSING ERROR [None]
  - DRUG INEFFECTIVE [None]
  - FATIGUE [None]
  - GASTROENTERITIS VIRAL [None]
  - HAEMATOCHEZIA [None]
  - NAUSEA [None]
  - PYREXIA [None]
  - SKIN LESION [None]
  - VOMITING [None]
  - WEIGHT DECREASED [None]
